FAERS Safety Report 25190223 (Version 1)
Quarter: 2025Q2

REPORT INFORMATION
  Report Type: Spontaneous
  Country: US (occurrence: None)
  Receive Date: 20250408
  Receipt Date: 20250408
  Transmission Date: 20250716
  Serious: Yes (Other)
  Sender: FDA-CTU
  Company Number: None

PATIENT

DRUGS (1)
  1. HYALURONIC ACID [Suspect]
     Active Substance: HYALURONIC ACID

REACTIONS (6)
  - Product formulation issue [None]
  - Thermal burn [None]
  - Rash [None]
  - Skin irritation [None]
  - Product contamination microbial [None]
  - Suspected counterfeit product [None]

NARRATIVE: CASE EVENT DATE: 20250210
